FAERS Safety Report 4690996-5 (Version None)
Quarter: 2005Q2

REPORT INFORMATION
  Report Type: 
  Country: None (occurrence: None)
  Receive Date: 20050615
  Receipt Date: 20050607
  Transmission Date: 20051028
  Serious: Yes (Other)
  Sender: FDA-Public Use
  Company Number: HR-BRISTOL-MYERS SQUIBB COMPANY-12995882

PATIENT
  Sex: Female

DRUGS (2)
  1. VEPESID [Suspect]
     Indication: SMALL CELL LUNG CANCER STAGE UNSPECIFIED
     Dates: start: 20050323, end: 20050325
  2. TRITACE [Concomitant]
     Route: 048

REACTIONS (2)
  - RASH GENERALISED [None]
  - TRANSIENT ISCHAEMIC ATTACK [None]
